FAERS Safety Report 14762169 (Version 1)
Quarter: 2018Q2

REPORT INFORMATION
  Report Type: Spontaneous
  Country: US (occurrence: US)
  Receive Date: 20180416
  Receipt Date: 20180416
  Transmission Date: 20180711
  Serious: No
  Sender: FDA-Public Use
  Company Number: US-BION-006996

PATIENT
  Sex: Female
  Weight: 54 kg

DRUGS (2)
  1. ASPIRIN 81MG [Concomitant]
     Active Substance: ASPIRIN
     Indication: PROPHYLAXIS
     Dosage: 1 TABLET DAILY
     Route: 048
  2. ALEVE [Suspect]
     Active Substance: NAPROXEN SODIUM
     Indication: PAIN
     Dosage: 1 TABLET AS NEEDED
     Route: 048

REACTIONS (1)
  - Expired product administered [Not Recovered/Not Resolved]
